FAERS Safety Report 14604059 (Version 3)
Quarter: 2018Q2

REPORT INFORMATION
  Report Type: Report from Study
  Country: US (occurrence: US)
  Receive Date: 20180306
  Receipt Date: 20180601
  Transmission Date: 20180711
  Serious: Yes (Hospitalization)
  Sender: FDA-Public Use
  Company Number: PHEH2014US001615

PATIENT
  Sex: Female

DRUGS (4)
  1. TOBI [Suspect]
     Active Substance: TOBRAMYCIN
     Indication: CYSTIC FIBROSIS
     Dosage: UNK
     Route: 065
  2. TOBI PODHALER [Suspect]
     Active Substance: TOBRAMYCIN
     Indication: CYSTIC FIBROSIS
     Dosage: UNK UNK, BID (TWICE A DAY)
     Route: 055
     Dates: start: 20130801
  3. TOBI PODHALER [Suspect]
     Active Substance: TOBRAMYCIN
     Indication: PSEUDOMONAS INFECTION
     Dosage: UNK
     Route: 055
  4. TOBI PODHALER [Suspect]
     Active Substance: TOBRAMYCIN
     Indication: STENOTROPHOMONAS INFECTION

REACTIONS (7)
  - Cystic fibrosis [Unknown]
  - Injury [Unknown]
  - Cystic fibrosis related diabetes [Unknown]
  - Disease progression [Unknown]
  - Dysphonia [Recovered/Resolved]
  - Clostridium difficile infection [Unknown]
  - Forced expiratory volume decreased [Unknown]
